FAERS Safety Report 15541094 (Version 1)
Quarter: 2018Q4

REPORT INFORMATION
  Report Type: Report from Study
  Country: BR (occurrence: BR)
  Receive Date: 20181023
  Receipt Date: 20181023
  Transmission Date: 20190205
  Serious: Yes (Death)
  Sender: FDA-Public Use
  Company Number: PHHY2018BR133148

PATIENT
  Sex: Female

DRUGS (1)
  1. TRAVATAN [Suspect]
     Active Substance: TRAVOPROST
     Indication: GLAUCOMA
     Dosage: 1 GTT, IN EACH EYE
     Route: 047

REACTIONS (1)
  - Death [Fatal]

NARRATIVE: CASE EVENT DATE: 20130713
